FAERS Safety Report 19108258 (Version 2)
Quarter: 2021Q2

REPORT INFORMATION
  Report Type: Report from Study
  Country: US (occurrence: US)
  Receive Date: 20210408
  Receipt Date: 20210521
  Transmission Date: 20210717
  Serious: Yes (Hospitalization, Other)
  Sender: FDA-Public Use
  Company Number: US-UCBSA-2021016447

PATIENT
  Age: 29 Year
  Sex: Female

DRUGS (2)
  1. LACOSAMIDE. [Suspect]
     Active Substance: LACOSAMIDE
     Indication: PARTIAL SEIZURES
     Dosage: 200 MILLIGRAM, 3X/DAY (TID)
     Route: 048
     Dates: start: 20210326, end: 20210507
  2. LACOSAMIDE. [Suspect]
     Active Substance: LACOSAMIDE
     Dosage: UNKNOWN INCREASED DOSE
     Dates: start: 2021

REACTIONS (6)
  - Vomiting [Not Recovered/Not Resolved]
  - Diabetes mellitus [Not Recovered/Not Resolved]
  - Overdose [Unknown]
  - Off label use [Unknown]
  - Seizure [Not Recovered/Not Resolved]
  - COVID-19 [Recovered/Resolved]

NARRATIVE: CASE EVENT DATE: 2021
